FAERS Safety Report 5911846-2 (Version None)
Quarter: 2008Q4

REPORT INFORMATION
  Report Type: 
  Country: None (occurrence: None)
  Receive Date: 20081006
  Receipt Date: 20080924
  Transmission Date: 20090506
  Serious: Yes (Hospitalization)
  Sender: FDA-Public Use
  Company Number: 2008AL010840

PATIENT
  Age: 51 Year
  Sex: Female

DRUGS (4)
  1. DICLOFENAC SODIUM [Suspect]
     Indication: DRUG USE FOR UNKNOWN INDICATION
  2. DESOGESTREL [Concomitant]
  3. ETANERCEPT [Concomitant]
  4. METHOTREXATE [Concomitant]

REACTIONS (4)
  - ENCEPHALOPATHY [None]
  - INTRACRANIAL VENOUS SINUS THROMBOSIS [None]
  - SHOCK HAEMORRHAGIC [None]
  - SUPERIOR SAGITTAL SINUS THROMBOSIS [None]
